FAERS Safety Report 20986809 (Version 2)
Quarter: 2022Q3

REPORT INFORMATION
  Report Type: Spontaneous
  Country: IN (occurrence: IN)
  Receive Date: 20220621
  Receipt Date: 20220721
  Transmission Date: 20221027
  Serious: Yes (Death, Other)
  Sender: FDA-Public Use
  Company Number: IN-BAYER-2022P005188

PATIENT
  Age: 37 Year
  Sex: Male

DRUGS (1)
  1. ULTRAVIST [Suspect]
     Active Substance: IOPROMIDE
     Indication: Computerised tomogram abdomen
     Dosage: UNK
     Route: 042
     Dates: start: 202206, end: 202206

REACTIONS (2)
  - Death [Fatal]
  - Vomiting [None]

NARRATIVE: CASE EVENT DATE: 20220601
